FAERS Safety Report 19322266 (Version 1)
Quarter: 2021Q2

REPORT INFORMATION
  Report Type: Spontaneous
  Country: PT (occurrence: PT)
  Receive Date: 20210528
  Receipt Date: 20210528
  Transmission Date: 20210717
  Serious: Yes (Other)
  Sender: FDA-Public Use
  Company Number: PT-AMGEN-PRTSP2021081710

PATIENT
  Age: 31 Year
  Sex: Female

DRUGS (1)
  1. ENBREL [Suspect]
     Active Substance: ETANERCEPT
     Indication: RHEUMATOID ARTHRITIS
     Dosage: 1 ML, 50MG/1ML WEEKLY
     Route: 058
     Dates: start: 20200305, end: 20210424

REACTIONS (3)
  - Pruritus [Unknown]
  - Cardiac discomfort [Unknown]
  - Rash [Unknown]

NARRATIVE: CASE EVENT DATE: 20210104
